FAERS Safety Report 6565764-X (Version None)
Quarter: 2010Q1

REPORT INFORMATION
  Report Type: 
  Country: None (occurrence: None)
  Receive Date: 20100201
  Receipt Date: 20090909
  Transmission Date: 20100710
  Serious: No
  Sender: FDA-Public Use
  Company Number: US-ABBOTT-09P-163-0596893-00

PATIENT
  Sex: Male
  Weight: 88.53 kg

DRUGS (2)
  1. LUPRON DEPOT [Suspect]
     Indication: PROSTATE CANCER
     Dosage: UNSURE OF STRENGTH
     Route: 050
     Dates: start: 20080101, end: 20081201
  2. LUPRON DEPOT [Suspect]
     Indication: PROSTATIC SPECIFIC ANTIGEN INCREASED
     Dates: start: 20090101

REACTIONS (1)
  - DRUG INEFFECTIVE [None]
